FAERS Safety Report 11087551 (Version 1)
Quarter: 2015Q2

REPORT INFORMATION
  Report Type: Spontaneous
  Country: AU (occurrence: AU)
  Receive Date: 20150504
  Receipt Date: 20150504
  Transmission Date: 20150821
  Serious: Yes (Other)
  Sender: FDA-Public Use
  Company Number: AU-WATSON-2015-08928

PATIENT
  Age: 15 Year
  Sex: Male
  Weight: 114 kg

DRUGS (2)
  1. FLUOXETINE [Concomitant]
     Active Substance: FLUOXETINE\FLUOXETINE HYDROCHLORIDE
     Indication: DEPRESSION
     Dosage: 20 MG, QAM
     Route: 065
  2. QUETIAPINE (UNKNOWN) [Suspect]
     Active Substance: QUETIAPINE
     Indication: HALLUCINATIONS, MIXED
     Dosage: 150 MG, QPM
     Route: 065

REACTIONS (3)
  - Metabolic syndrome [Unknown]
  - Abnormal weight gain [Recovering/Resolving]
  - Hepatic steatosis [Unknown]
